FAERS Safety Report 24954486 (Version 1)
Quarter: 2025Q1

REPORT INFORMATION
  Report Type: Spontaneous
  Country: US (occurrence: US)
  Receive Date: 20250211
  Receipt Date: 20250211
  Transmission Date: 20250409
  Serious: Yes (Hospitalization, Other)
  Sender: KINIKSA PHARMACEUTICALS
  Company Number: US-Kiniksa Pharmaceuticals Ltd.-2025KPU000365

PATIENT
  Age: 64 Year
  Sex: Female

DRUGS (2)
  1. ARCALYST [Suspect]
     Active Substance: RILONACEPT
     Indication: Pericarditis
     Dates: start: 20240601, end: 20240601
  2. ARCALYST [Suspect]
     Active Substance: RILONACEPT
     Indication: Pericarditis uraemic
     Dates: start: 2024, end: 20241123

REACTIONS (8)
  - Sepsis [Unknown]
  - Actinomyces test positive [Unknown]
  - Anal abscess [Recovering/Resolving]
  - Pericarditis uraemic [Unknown]
  - Furuncle [Recovering/Resolving]
  - Urinary tract infection [Unknown]
  - Infection [Unknown]
  - Loss of personal independence in daily activities [Recovering/Resolving]

NARRATIVE: CASE EVENT DATE: 20240101
